FAERS Safety Report 4375267-9 (Version None)
Quarter: 2004Q2

REPORT INFORMATION
  Report Type: 
  Country: None (occurrence: None)
  Receive Date: 20040608
  Receipt Date: 20040524
  Transmission Date: 20050107
  Serious: Yes (Death)
  Sender: FDA-Public Use
  Company Number: 2004S1001161

PATIENT
  Age: 45 Year
  Sex: Male

DRUGS (9)
  1. CLOZAPINE [Suspect]
     Indication: PSYCHOTIC DISORDER
     Dosage: 50MG Q AM AND 50MG Q PM ORAL
     Route: 048
     Dates: start: 20040401
  2. CLOZAPINE [Suspect]
     Indication: SCHIZOPHRENIA
     Dosage: 50MG Q AM AND 50MG Q PM ORAL
     Route: 048
     Dates: start: 20040401
  3. CLOZAPINE [Suspect]
     Dosage: 600MG Q PM ORAL
     Route: 048
     Dates: start: 20040401
  4. BUPROPION HCL [Concomitant]
  5. BENZTROPINE MESYLATE [Concomitant]
  6. RISPERIDONE [Concomitant]
  7. TRAZODONE HCL [Concomitant]
  8. VITAMIN C [Concomitant]
  9. ACETAMINOPHEN [Concomitant]

REACTIONS (1)
  - DEATH [None]
